FAERS Safety Report 11009711 (Version 1)
Quarter: 2015Q2

REPORT INFORMATION
  Report Type: Spontaneous
  Country: US (occurrence: None)
  Receive Date: 20150409
  Receipt Date: 20150409
  Transmission Date: 20150821
  Serious: No
  Sender: FDA-Public Use
  Company Number: None

PATIENT
  Age: 57 Year
  Sex: Female
  Weight: 63.5 kg

DRUGS (1)
  1. PREDNISONE 50MG ROXANE [Suspect]
     Active Substance: PREDNISONE
     Indication: SINUSITIS
     Route: 048

REACTIONS (16)
  - Agitation [None]
  - Energy increased [None]
  - Neck pain [None]
  - Thinking abnormal [None]
  - Asthenia [None]
  - Headache [None]
  - Feeling abnormal [None]
  - Fatigue [None]
  - Pain [None]
  - Throat tightness [None]
  - Disturbance in attention [None]
  - Pyrexia [None]
  - Insomnia [None]
  - Aggression [None]
  - Logorrhoea [None]
  - Oropharyngeal pain [None]

NARRATIVE: CASE EVENT DATE: 20150405
